APPROVED DRUG PRODUCT: FENOPROFEN CALCIUM
Active Ingredient: FENOPROFEN CALCIUM
Strength: EQ 300MG BASE
Dosage Form/Route: CAPSULE;ORAL
Application: A072472 | Product #001
Applicant: WARNER CHILCOTT DIV WARNER LAMBERT CO
Approved: Apr 30, 1991 | RLD: No | RS: No | Type: DISCN